FAERS Safety Report 8532022 (Version 9)
Quarter: 2014Q3

REPORT INFORMATION
  Report Type: Report from Study
  Country: BR (occurrence: BR)
  Receive Date: 20120426
  Receipt Date: 20140716
  Transmission Date: 20150326
  Serious: Yes (Hospitalization, Other)
  Sender: FDA-Public Use
  Company Number: BR-ROCHE-1062471

PATIENT
  Age: 76 Year
  Sex: Female
  Weight: 78 kg

DRUGS (13)
  1. MABTHERA [Suspect]
     Active Substance: RITUXIMAB
     Route: 065
     Dates: start: 2010
  2. ARADOIS [Concomitant]
     Active Substance: LOSARTAN POTASSIUM
     Route: 065
  3. MAREVAN [Concomitant]
     Active Substance: WARFARIN SODIUM
  4. ENDOFOLIN [Concomitant]
     Active Substance: FOLIC ACID
  5. METHOTREXATE [Concomitant]
     Active Substance: METHOTREXATE
     Route: 065
  6. RANITIDINE [Concomitant]
     Active Substance: RANITIDINE\RANITIDINE HYDROCHLORIDE
  7. DEFLAZACORT [Concomitant]
     Active Substance: DEFLAZACORT
  8. MABTHERA [Suspect]
     Active Substance: RITUXIMAB
     Indication: RHEUMATOID ARTHRITIS
     Dosage: DATE OF LAST INFUSION : 27/AUG/2012.
     Route: 042
     Dates: start: 20111123, end: 20120911
  9. DAFLON [Concomitant]
     Active Substance: DIOSMIN\HESPERIDIN
     Route: 065
  10. FRONTAL [Concomitant]
     Active Substance: ALPRAZOLAM
     Indication: INSOMNIA
     Route: 065
  11. MARCOUMAR [Suspect]
     Active Substance: PHENPROCOUMON
     Indication: PRODUCT USED FOR UNKNOWN INDICATION
     Route: 065
  12. LASIX [Concomitant]
     Active Substance: FUROSEMIDE
  13. PLAVIX [Concomitant]
     Active Substance: CLOPIDOGREL BISULFATE

REACTIONS (26)
  - Haematochezia [Unknown]
  - Hyperuricaemia [Unknown]
  - Atelectasis [Unknown]
  - Unevaluable event [Not Recovered/Not Resolved]
  - Renal disorder [Not Recovered/Not Resolved]
  - Haemorrhage [Recovered/Resolved]
  - Immunodeficiency [Unknown]
  - Dyspnoea [Recovered/Resolved]
  - Thrombosis [Unknown]
  - Pneumonia [Recovered/Resolved]
  - Pain in extremity [Recovered/Resolved]
  - Asthenia [Unknown]
  - Fall [Unknown]
  - Lung disorder [Recovered/Resolved]
  - Vasculitis [Recovered/Resolved]
  - Anaemia [Unknown]
  - Performance status decreased [Not Recovered/Not Resolved]
  - Thrombosis [Recovered/Resolved]
  - Lumbar vertebral fracture [Recovered/Resolved]
  - Obstructive airways disorder [Recovered/Resolved]
  - Eating disorder [Unknown]
  - Hypersensitivity [Unknown]
  - Impaired healing [Recovered/Resolved]
  - Herpes virus infection [Recovered/Resolved]
  - Urinary tract infection [Recovered/Resolved]
  - Bronchitis [Unknown]

NARRATIVE: CASE EVENT DATE: 201202
